FAERS Safety Report 8818654 (Version 1)
Quarter: 2012Q4

REPORT INFORMATION
  Report Type: 
  Country: CA (occurrence: CA)
  Receive Date: 20121001
  Receipt Date: 20121001
  Transmission Date: 20130627
  Serious: Yes (Other)
  Sender: FDA-Public Use
  Company Number: PHHY2012CA085332

PATIENT
  Sex: Female

DRUGS (3)
  1. ACLASTA [Suspect]
     Indication: OSTEOPOROSIS
     Route: 042
     Dates: start: 20091202
  2. ACLASTA [Suspect]
     Route: 042
     Dates: start: 20101202
  3. ACLASTA [Suspect]
     Route: 042
     Dates: start: 20111205

REACTIONS (2)
  - Multiple fractures [Unknown]
  - Spinal fracture [Unknown]
